FAERS Safety Report 13134014 (Version 2)
Quarter: 2017Q1

REPORT INFORMATION
  Report Type: Spontaneous
  Country: FR (occurrence: FR)
  Receive Date: 20170120
  Receipt Date: 20170223
  Transmission Date: 20170428
  Serious: Yes (Other)
  Sender: FDA-Public Use
  Company Number: FR-009507513-1410FRA004439

PATIENT
  Age: 22 Year
  Sex: Female
  Weight: 45 kg

DRUGS (1)
  1. NEXPLANON [Suspect]
     Active Substance: ETONOGESTREL
     Indication: CONTRACEPTION
     Dosage: 1 IMPLANT, UNK
     Route: 059
     Dates: start: 20140107

REACTIONS (5)
  - Device embolisation [Unknown]
  - Complication associated with device [Recovered/Resolved]
  - Implant site haemorrhage [Unknown]
  - Implant site pain [Unknown]
  - Device deployment issue [Unknown]

NARRATIVE: CASE EVENT DATE: 20140107
